FAERS Safety Report 5846348-5 (Version None)
Quarter: 2008Q3

REPORT INFORMATION
  Report Type: 
  Country: None (occurrence: None)
  Receive Date: 20080815
  Receipt Date: 20080806
  Transmission Date: 20090109
  Serious: Yes (Other)
  Sender: FDA-Public Use
  Company Number: US-JNJFOC-20080801724

PATIENT
  Sex: Female
  Weight: 99.79 kg

DRUGS (2)
  1. DURAGESIC-100 [Suspect]
     Route: 062
  2. DURAGESIC-100 [Suspect]
     Indication: PAIN
     Route: 062

REACTIONS (5)
  - ASTHENIA [None]
  - CONFUSIONAL STATE [None]
  - COORDINATION ABNORMAL [None]
  - DELIRIUM [None]
  - FAILURE TO THRIVE [None]
